FAERS Safety Report 5367919-9 (Version None)
Quarter: 2007Q2

REPORT INFORMATION
  Report Type: 
  Country: None (occurrence: None)
  Receive Date: 20070622
  Receipt Date: 20070612
  Transmission Date: 20071010
  Serious: Yes (Hospitalization, Other)
  Sender: FDA-Public Use
  Company Number: US-AMGEN-US217776

PATIENT
  Sex: Male
  Weight: 72 kg

DRUGS (22)
  1. EPOGEN [Suspect]
     Indication: DIALYSIS
     Route: 042
     Dates: start: 20040101
  2. VYTORIN [Concomitant]
  3. LEVOTHYROXINE SODIUM [Concomitant]
     Route: 048
  4. TOPROL-XL [Concomitant]
     Route: 048
  5. NEXIUM [Concomitant]
     Route: 048
  6. ALLOPURINOL [Concomitant]
     Route: 048
  7. LISINOPRIL [Concomitant]
     Route: 048
  8. FISH OIL [Concomitant]
     Route: 048
  9. COLACE [Concomitant]
     Route: 048
  10. ASPIRIN [Concomitant]
     Route: 048
  11. LANTUS [Concomitant]
  12. NORVASC [Concomitant]
     Route: 048
  13. SPIRONOLACTONE [Concomitant]
     Route: 048
  14. FLOMAX [Concomitant]
     Route: 048
  15. LACTULOSE [Concomitant]
  16. DULCOLAX [Concomitant]
  17. HUMULIN 70/30 [Concomitant]
  18. NITROLINGUAL [Concomitant]
     Route: 045
  19. TRAZODONE HCL [Concomitant]
     Route: 048
  20. PREDNISONE TAB [Concomitant]
  21. IRON [Concomitant]
     Route: 042
  22. OXYGEN [Concomitant]
     Dates: start: 20060101

REACTIONS (6)
  - ANAEMIA [None]
  - ARTERIOVENOUS FISTULA SITE HAEMORRHAGE [None]
  - DIARRHOEA [None]
  - HEPARIN-INDUCED THROMBOCYTOPENIA [None]
  - STAPHYLOCOCCAL BACTERAEMIA [None]
  - VITAMIN D DEFICIENCY [None]
